FAERS Safety Report 14930791 (Version 2)
Quarter: 2018Q4

REPORT INFORMATION
  Report Type: Spontaneous
  Country: FR (occurrence: FR)
  Receive Date: 20180524
  Receipt Date: 20181114
  Transmission Date: 20190204
  Serious: No
  Sender: FDA-Public Use
  Company Number: FR-MERCK KGAA-2048352

PATIENT
  Age: 66 Year
  Sex: Female

DRUGS (1)
  1. EUTHYROX [Suspect]
     Active Substance: LEVOTHYROXINE SODIUM
     Indication: POST PROCEDURAL HYPOTHYROIDISM
     Dates: start: 2017

REACTIONS (32)
  - Irritability [None]
  - Social avoidant behaviour [None]
  - Alopecia [None]
  - Swelling [None]
  - Antisocial personality disorder [None]
  - Gamma-glutamyltransferase increased [None]
  - Nausea [None]
  - Back pain [Recovered/Resolved]
  - Dizziness [None]
  - Blood thyroid stimulating hormone increased [Not Recovered/Not Resolved]
  - Poor quality sleep [None]
  - Loss of libido [None]
  - Aggression [None]
  - Arthralgia [Recovering/Resolving]
  - Blood cholesterol increased [None]
  - Initial insomnia [None]
  - Fatigue [None]
  - Gingival bleeding [None]
  - Myalgia [Recovering/Resolving]
  - Eczema [None]
  - Monocyte count increased [None]
  - Gait disturbance [None]
  - Dehydroepiandrosterone increased [None]
  - Tri-iodothyronine free decreased [None]
  - Suffocation feeling [None]
  - Decreased activity [None]
  - Noninfective gingivitis [None]
  - Sciatica [None]
  - Asthenia [None]
  - Weight increased [Recovered/Resolved]
  - Mood swings [Recovered/Resolved]
  - Hyperhidrosis [None]

NARRATIVE: CASE EVENT DATE: 20171206
